FAERS Safety Report 25398958 (Version 2)
Quarter: 2025Q2

REPORT INFORMATION
  Report Type: Report from Study
  Country: US (occurrence: US)
  Receive Date: 20250605
  Receipt Date: 20250617
  Transmission Date: 20250717
  Serious: Yes (Hospitalization, Other)
  Sender: ABBVIE
  Company Number: US-ABBVIE-6311591

PATIENT
  Age: 72 Year
  Sex: Male
  Weight: 115.21 kg

DRUGS (1)
  1. SKYRIZI [Suspect]
     Active Substance: RISANKIZUMAB-RZAA
     Indication: Psoriasis
     Route: 058
     Dates: start: 20250225

REACTIONS (5)
  - Pulmonary embolism [Recovered/Resolved]
  - Pulmonary thrombosis [Recovering/Resolving]
  - Dyspnoea [Recovered/Resolved]
  - Fatigue [Recovered/Resolved]
  - Cardiac ventricular thrombosis [Recovering/Resolving]

NARRATIVE: CASE EVENT DATE: 20250527
